FAERS Safety Report 4421816-1 (Version None)
Quarter: 2004Q3

REPORT INFORMATION
  Report Type: 
  Country: None (occurrence: None)
  Receive Date: 20040806
  Receipt Date: 20040727
  Transmission Date: 20050211
  Serious: Yes (Other)
  Sender: FDA-Public Use
  Company Number: 2004225162BR

PATIENT
  Age: 45 Year
  Sex: Female

DRUGS (2)
  1. DOSTINEX [Suspect]
     Indication: HYPERPROLACTINAEMIA
     Dosage: 2 TABLETS WEEKLY, ORAL
     Route: 048
     Dates: start: 20040101
  2. VERTIZINE D [Concomitant]

REACTIONS (2)
  - HEPATITIS A [None]
  - HEPATITIS B [None]
